FAERS Safety Report 5230066-0 (Version None)
Quarter: 2007Q1

REPORT INFORMATION
  Report Type: 
  Country: None (occurrence: None)
  Receive Date: 20070206
  Receipt Date: 20061016
  Transmission Date: 20070707
  Serious: No
  Sender: FDA-Public Use
  Company Number: US-GLAXOSMITHKLINE-A0623697A

PATIENT
  Sex: Female

DRUGS (3)
  1. PAROXETINE HCL [Suspect]
     Dosage: 40MG PER DAY
     Route: 048
     Dates: start: 20061006, end: 20061010
  2. DIOVAN [Concomitant]
  3. PREMARIN [Concomitant]

REACTIONS (1)
  - DRUG INEFFECTIVE [None]
